FAERS Safety Report 9019768 (Version 3)
Quarter: 2013Q3

REPORT INFORMATION
  Report Type: Spontaneous
  Country: GB (occurrence: GB)
  Receive Date: 20130118
  Receipt Date: 20130715
  Transmission Date: 20140515
  Serious: Yes (Death)
  Sender: FDA-Public Use
  Company Number: GB-ROCHE-1180861

PATIENT
  Age: 64 Year
  Sex: Male
  Weight: 101 kg

DRUGS (13)
  1. ROACTEMRA [Suspect]
     Indication: RHEUMATOID ARTHRITIS
     Route: 042
     Dates: start: 20120907, end: 20121109
  2. BISOPROLOL [Concomitant]
     Route: 065
  3. PREDNISOLONE [Concomitant]
     Route: 048
  4. METHOTREXAT [Concomitant]
     Indication: RHEUMATOID ARTHRITIS
     Route: 065
     Dates: end: 20121207
  5. FOLIC ACID [Concomitant]
     Indication: RHEUMATOID ARTHRITIS
     Route: 065
     Dates: end: 20121207
  6. OMEPRAZOL [Concomitant]
     Route: 048
  7. HYDROXYCHLOROQUINE [Concomitant]
     Indication: RHEUMATOID ARTHRITIS
     Route: 048
  8. ASPIRIN [Concomitant]
     Route: 048
  9. ATORVASTATIN [Concomitant]
     Route: 048
  10. FUROSEMIDE [Concomitant]
     Route: 048
     Dates: end: 20121107
  11. SPIRONOLACTONE [Concomitant]
     Route: 048
  12. FENTANYL [Concomitant]
  13. ALENDRONIC ACID [Concomitant]
     Route: 048

REACTIONS (3)
  - Intestinal perforation [Fatal]
  - Peritonitis [Fatal]
  - Multi-organ failure [Fatal]
